FAERS Safety Report 14740426 (Version 1)
Quarter: 2018Q2

REPORT INFORMATION
  Report Type: Spontaneous
  Country: US (occurrence: US)
  Receive Date: 20180410
  Receipt Date: 20180410
  Transmission Date: 20180711
  Serious: No
  Sender: FDA-Public Use
  Company Number: US-TEVA-2018-US-865589

PATIENT
  Sex: Male

DRUGS (2)
  1. ASPIRIN. [Concomitant]
     Active Substance: ASPIRIN
     Route: 065
  2. METOPROLOL SUCCINATE. [Suspect]
     Active Substance: METOPROLOL SUCCINATE
     Dates: start: 201710

REACTIONS (7)
  - Abnormal dreams [Unknown]
  - Renal function test abnormal [Unknown]
  - Palpitations [Unknown]
  - Chest discomfort [Unknown]
  - Drug ineffective [Unknown]
  - Joint swelling [Unknown]
  - Drug effect increased [Unknown]

NARRATIVE: CASE EVENT DATE: 20180213
